FAERS Safety Report 7281421-9 (Version None)
Quarter: 2011Q1

REPORT INFORMATION
  Report Type: 
  Country: None (occurrence: None)
  Receive Date: 20110208
  Receipt Date: 20110127
  Transmission Date: 20110831
  Serious: Yes (Other)
  Sender: FDA-Public Use
  Company Number: US-BAYER-2011-009806

PATIENT
  Sex: Male

DRUGS (1)
  1. AVELOX [Suspect]
     Dosage: DAILY DOSE 400 MG
     Route: 048
     Dates: start: 20110119, end: 20110121

REACTIONS (5)
  - FEELING ABNORMAL [None]
  - DISORIENTATION [None]
  - ANXIETY [None]
  - VISION BLURRED [None]
  - HEART RATE INCREASED [None]
